FAERS Safety Report 25187868 (Version 4)
Quarter: 2025Q4

REPORT INFORMATION
  Report Type: Spontaneous
  Country: US (occurrence: US)
  Receive Date: 20250411
  Receipt Date: 20251025
  Transmission Date: 20260118
  Serious: Yes (Death, Other)
  Sender: ABBVIE
  Company Number: US-ABBVIE-6218444

PATIENT
  Age: 81 Year
  Sex: Male
  Weight: 73 kg

DRUGS (6)
  1. TIMOLOL [Suspect]
     Active Substance: TIMOLOL
     Indication: Product used for unknown indication
     Dosage: TIMOLOL 0.25%, ROA: OPHTHALMIC
  2. LUMIGAN [Suspect]
     Active Substance: BIMATOPROST
     Indication: Glaucoma
     Dosage: FREQUENCY TEXT: ONE DROP EACH EYE AT BEDTIME?START DATE TEXT: BEEN ON LUMIGAN FOR YEARS?0.01, OPH...
     Route: 065
  3. LUMIGAN [Suspect]
     Active Substance: BIMATOPROST
     Indication: Intraocular pressure test
  4. XARELTO [Concomitant]
     Active Substance: RIVAROXABAN
     Indication: Product used for unknown indication
  5. ASPIRIN [Concomitant]
     Active Substance: ASPIRIN
     Indication: Product used for unknown indication
  6. ROSUVASTATIN [Concomitant]
     Active Substance: ROSUVASTATIN
     Indication: Product used for unknown indication

REACTIONS (7)
  - Death [Fatal]
  - Eyelash changes [Unknown]
  - Injury corneal [Unknown]
  - Blindness unilateral [Not Recovered/Not Resolved]
  - Corneal abrasion [Unknown]
  - Visual impairment [Unknown]
  - Eye irritation [Unknown]

NARRATIVE: CASE EVENT DATE: 20240101
